FAERS Safety Report 8587245-4 (Version None)
Quarter: 2012Q3

REPORT INFORMATION
  Report Type: 
  Country: None (occurrence: None)
  Receive Date: 20120810
  Receipt Date: 20120116
  Transmission Date: 20120928
  Serious: No
  Sender: FDA-Public Use
  Company Number: US-ASTRAZENECA-2011SE51570

PATIENT
  Age: 72 Year
  Sex: Female

DRUGS (2)
  1. ARIMIDEX [Suspect]
     Route: 048
  2. NEXIUM [Suspect]
     Route: 048

REACTIONS (6)
  - GASTRIC INFECTION [None]
  - BACK DISORDER [None]
  - GASTROOESOPHAGEAL REFLUX DISEASE [None]
  - CYSTITIS [None]
  - MALAISE [None]
  - BLOOD CHOLESTEROL INCREASED [None]
